FAERS Safety Report 19584034 (Version 1)
Quarter: 2021Q3

REPORT INFORMATION
  Report Type: Report from Study
  Country: IL (occurrence: IL)
  Receive Date: 20210720
  Receipt Date: 20210720
  Transmission Date: 20211014
  Serious: Yes (Hospitalization)
  Sender: FDA-Public Use
  Company Number: IL-KARYOPHARM-2021KPT000863

PATIENT
  Age: 66 Year
  Sex: Male
  Weight: 73 kg

DRUGS (12)
  1. SELINEXOR [Suspect]
     Active Substance: SELINEXOR
     Indication: PLASMA CELL MYELOMA
     Dosage: 40 MG, WEEKLY
     Route: 048
     Dates: start: 20210525, end: 202106
  2. G?CSF [Concomitant]
     Active Substance: GRANULOCYTE COLONY-STIMULATING FACTOR NOS
     Indication: NEUTROPENIA
     Dosage: 480 UG, 3X/WEEK
     Route: 042
     Dates: start: 20210615, end: 20210620
  3. NEUPOGEN [Concomitant]
     Active Substance: FILGRASTIM
     Indication: NEUTROPENIA
     Dosage: 300 UG, SINGLE
     Route: 042
     Dates: start: 20210617, end: 20210617
  4. NEXIUM I.V. [Concomitant]
     Active Substance: ESOMEPRAZOLE SODIUM
     Indication: GASTROOESOPHAGEAL REFLUX DISEASE
     Dosage: 20 MG, QD
     Route: 048
     Dates: start: 202103
  5. AMLODIPINE [Concomitant]
     Active Substance: AMLODIPINE BESYLATE
     Indication: HYPERTENSION
     Dosage: 5 MG, QD
     Route: 048
     Dates: start: 201911
  6. DEXAMETHASONE. [Suspect]
     Active Substance: DEXAMETHASONE
     Indication: PLASMA CELL MYELOMA
     Dosage: 40 MG, WEEKLY
     Route: 048
     Dates: start: 20210525, end: 202106
  7. ACYCLOVIR [ACICLOVIR] [Concomitant]
     Active Substance: ACYCLOVIR
     Indication: PROPHYLAXIS
     Dosage: 400 MG, BID
     Route: 048
     Dates: start: 201205
  8. ZEFFIX [Concomitant]
     Active Substance: LAMIVUDINE
     Indication: HEPATITIS B
     Dosage: 100 MG, QD
     Route: 048
     Dates: start: 201903
  9. DISEPTYL FORTE [Concomitant]
     Indication: PROPHYLAXIS
     Dosage: 160 MG, 3X/WEEK
     Route: 048
     Dates: start: 201210
  10. POMALIDOMIDE [Suspect]
     Active Substance: POMALIDOMIDE
     Indication: PLASMA CELL MYELOMA
     Dosage: 4 MG, QD
     Route: 048
     Dates: start: 20210525, end: 20210625
  11. PREGABALIN. [Concomitant]
     Active Substance: PREGABALIN
     Indication: NEURALGIA
     Dosage: 150 MG, 2X/WEEK
     Route: 048
     Dates: start: 201810
  12. FENTANYL. [Concomitant]
     Active Substance: FENTANYL
     Indication: PAIN
     Dosage: 1 DOSAGE FORM, Q72H
     Dates: start: 20160624

REACTIONS (1)
  - Pneumonia [Recovered/Resolved]

NARRATIVE: CASE EVENT DATE: 20210624
